FAERS Safety Report 10240858 (Version 2)
Quarter: 2014Q3

REPORT INFORMATION
  Report Type: Spontaneous
  Country: JP (occurrence: JP)
  Receive Date: 20140617
  Receipt Date: 20140801
  Transmission Date: 20150326
  Serious: Yes (Disabling)
  Sender: FDA-Public Use
  Company Number: PHHY2014JP074446

PATIENT
  Age: 83 Year
  Sex: Male

DRUGS (2)
  1. ZOMETA [Suspect]
     Active Substance: ZOLEDRONIC ACID
     Indication: METASTASES TO BONE
     Dosage: 4 MG PER ADMINISTRATION
     Route: 041
     Dates: start: 201006, end: 201109
  2. UFT [Concomitant]
     Active Substance: TEGAFUR\URACIL
     Dosage: UNK UKN, UNK
     Route: 048

REACTIONS (13)
  - Primary sequestrum [Recovered/Resolved]
  - Exposed bone in jaw [Unknown]
  - Gingivitis [Recovered/Resolved]
  - Soft tissue infection [Unknown]
  - Swelling [Recovered/Resolved]
  - Impaired healing [Recovered/Resolved]
  - Osteonecrosis of jaw [Recovering/Resolving]
  - Pain in jaw [Unknown]
  - Tenderness [Recovered/Resolved]
  - Poor personal hygiene [Unknown]
  - Erythema [Unknown]
  - Oral disorder [Recovered/Resolved]
  - Osteomyelitis [Unknown]

NARRATIVE: CASE EVENT DATE: 201108
